FAERS Safety Report 10059086 (Version 1)
Quarter: 2014Q2

REPORT INFORMATION
  Report Type: Spontaneous
  Country: US (occurrence: US)
  Receive Date: 20140404
  Receipt Date: 20140404
  Transmission Date: 20141212
  Serious: No
  Sender: FDA-Public Use
  Company Number: US-GLAXOSMITHKLINE-A1018458A

PATIENT
  Age: 75 Year
  Sex: Female

DRUGS (3)
  1. ALLI [Suspect]
     Indication: PRODUCT USED FOR UNKNOWN INDICATION
     Dates: start: 2012, end: 201209
  2. LISINOPRIL [Concomitant]
     Indication: HYPERTENSION
  3. CHLORTHALIDONE [Concomitant]

REACTIONS (2)
  - Lipiduria [Recovered/Resolved]
  - Treatment noncompliance [Recovered/Resolved]
